FAERS Safety Report 9007524 (Version 1)
Quarter: 2013Q1

REPORT INFORMATION
  Report Type: Spontaneous
  Country: GB (occurrence: GB)
  Receive Date: 20130111
  Receipt Date: 20130111
  Transmission Date: 20140127
  Serious: Yes (Congenital Anomaly, Other)
  Sender: FDA-Public Use
  Company Number: GB-BRISTOL-MYERS SQUIBB COMPANY-17255340

PATIENT
  Age: 2 Day
  Sex: Female
  Weight: 2.55 kg

DRUGS (4)
  1. ARIPIPRAZOLE [Suspect]
     Route: 064
  2. BUSPIRONE [Suspect]
     Route: 064
  3. DIAZEPAM [Suspect]
     Route: 064
  4. METHADONE [Suspect]
     Route: 064

REACTIONS (2)
  - Heart block congenital [None]
  - Drug withdrawal syndrome neonatal [None]
